FAERS Safety Report 10384745 (Version 1)
Quarter: 2014Q3

REPORT INFORMATION
  Report Type: Spontaneous
  Country: US (occurrence: US)
  Receive Date: 20140814
  Receipt Date: 20140814
  Transmission Date: 20150326
  Serious: Yes (Hospitalization)
  Sender: FDA-Public Use
  Company Number: US-B.I. PHARMACEUTICALS,INC./RIDGEFIELD-2014-BI-36432BP

PATIENT
  Age: 75 Year
  Sex: Male

DRUGS (8)
  1. LISPRO [Concomitant]
     Active Substance: INSULIN LISPRO
     Route: 065
  2. TYLENOL [Concomitant]
     Active Substance: ACETAMINOPHEN
     Route: 065
  3. PROTONIX [Concomitant]
     Active Substance: PANTOPRAZOLE SODIUM
     Route: 065
  4. PRADAXA [Suspect]
     Active Substance: DABIGATRAN ETEXILATE MESYLATE
     Indication: PRODUCT USED FOR UNKNOWN INDICATION
     Dosage: 300 MG
     Route: 065
     Dates: end: 20120512
  5. LANTUS [Concomitant]
     Active Substance: INSULIN GLARGINE
     Dosage: 12 U
     Route: 065
  6. LASIX [Concomitant]
     Active Substance: FUROSEMIDE
     Route: 065
  7. KCL [Concomitant]
     Active Substance: POTASSIUM CHLORIDE
     Route: 065
  8. SIMVASTATIN. [Concomitant]
     Active Substance: SIMVASTATIN
     Route: 065

REACTIONS (5)
  - Microcytic anaemia [Unknown]
  - Hypotension [Unknown]
  - Pneumonia aspiration [Unknown]
  - Gastrointestinal haemorrhage [Unknown]
  - Thrombocytosis [Unknown]

NARRATIVE: CASE EVENT DATE: 201205
